FAERS Safety Report 15720503 (Version 1)
Quarter: 2018Q4

REPORT INFORMATION
  Report Type: Spontaneous
  Country: US (occurrence: US)
  Receive Date: 20181213
  Receipt Date: 20181213
  Transmission Date: 20190205
  Serious: Yes (Hospitalization)
  Sender: FDA-Public Use
  Company Number: US-NOVOPROD-636993

PATIENT
  Age: 85 Year
  Sex: Female

DRUGS (1)
  1. LEVEMIR [Suspect]
     Active Substance: INSULIN DETEMIR
     Indication: PRODUCT USED FOR UNKNOWN INDICATION
     Dosage: 12 UNITS AT NIGHT AND 30 IN THE MORNING
     Route: 065

REACTIONS (2)
  - Fall [Unknown]
  - Patella fracture [Unknown]

NARRATIVE: CASE EVENT DATE: 20181103
